FAERS Safety Report 9850707 (Version 1)
Quarter: 2014Q1

REPORT INFORMATION
  Report Type: Spontaneous
  Country: US (occurrence: US)
  Receive Date: 20140128
  Receipt Date: 20140128
  Transmission Date: 20141002
  Serious: Yes (Hospitalization)
  Sender: FDA-Public Use
  Company Number: US-BAXTER-2014BAX003044

PATIENT
  Age: 22 Year
  Sex: Male

DRUGS (2)
  1. DIANEAL LOW CALCIUM [Suspect]
     Indication: RENAL FAILURE CHRONIC
     Route: 033
     Dates: end: 201311
  2. DIANEAL LOW CALCIUM [Suspect]
     Route: 033
     Dates: start: 20140105

REACTIONS (1)
  - Hernia [Recovered/Resolved]
